FAERS Safety Report 16223877 (Version 1)
Quarter: 2019Q2

REPORT INFORMATION
  Report Type: Spontaneous
  Country: US (occurrence: US)
  Receive Date: 20190422
  Receipt Date: 20190422
  Transmission Date: 20190711
  Serious: No
  Sender: FDA-Public Use
  Company Number: US-AKRON, INC.-2066098

PATIENT
  Age: 73 Year
  Sex: Female

DRUGS (1)
  1. NYSTATIN. [Suspect]
     Active Substance: NYSTATIN
     Route: 048

REACTIONS (6)
  - Eye discharge [Unknown]
  - Dry skin [Unknown]
  - Headache [Unknown]
  - Stomatitis [Unknown]
  - Skin exfoliation [Unknown]
  - Throat irritation [Unknown]
